FAERS Safety Report 8916241 (Version 2)
Quarter: 2012Q4

REPORT INFORMATION
  Report Type: 
  Country: JP (occurrence: JP)
  Receive Date: 20121120
  Receipt Date: 20121126
  Transmission Date: 20130627
  Serious: Yes (Hospitalization)
  Sender: FDA-Public Use
  Company Number: JP-GLAXOSMITHKLINE-B0845769A

PATIENT
  Age: 88 Year
  Sex: Male
  Weight: 34 kg

DRUGS (3)
  1. VALTREX [Suspect]
     Indication: HERPES ZOSTER
     Dosage: 1000MG Three times per day
     Route: 048
     Dates: start: 20121110, end: 20121114
  2. SELBEX [Concomitant]
     Route: 048
  3. MIYA-BM [Concomitant]
     Route: 048

REACTIONS (5)
  - Altered state of consciousness [Unknown]
  - Pyrexia [Unknown]
  - Vomiting [Unknown]
  - Nausea [Unknown]
  - Dyslalia [Unknown]
